FAERS Safety Report 9783244 (Version 3)
Quarter: 2014Q2

REPORT INFORMATION
  Report Type: Spontaneous
  Country: US (occurrence: US)
  Receive Date: 20131226
  Receipt Date: 20140613
  Transmission Date: 20141212
  Serious: Yes (Other)
  Sender: FDA-Public Use
  Company Number: US-PFIZER INC-2013367468

PATIENT
  Age: 63 Year
  Sex: Female
  Weight: 86 kg

DRUGS (11)
  1. LIPITOR [Suspect]
     Indication: LOW DENSITY LIPOPROTEIN INCREASED
     Dosage: 10 MG, 1X/DAY AT NIGHT TIME
     Route: 048
     Dates: start: 200104, end: 200201
  2. LIPITOR [Suspect]
     Indication: CARDIOVASCULAR EVENT PROPHYLAXIS
     Dosage: 20 MG, 1X/DAY
     Route: 048
     Dates: start: 200712, end: 201008
  3. TRAMADOL [Concomitant]
     Indication: PAIN
     Dosage: 50 MG, ONE TO TWO TIMES DAILY AS NEEDED
     Dates: start: 20090108
  4. TRAMADOL [Concomitant]
     Dosage: 50 MG, 3X/DAY
     Dates: start: 20090204
  5. COREG [Concomitant]
     Dosage: 6.25 MG, 2X/DAY
     Dates: start: 20090108
  6. PRILOSEC [Concomitant]
     Dosage: UNK
     Dates: start: 20090108
  7. TRIAM/HCTZ [Concomitant]
     Dosage: ^25/37.5^, 1X/DAY
     Dates: start: 20090122
  8. NAPROXEN [Concomitant]
     Indication: PAIN
     Dosage: 500 MG, 2X/DAY
     Dates: start: 20090126
  9. LISINOPRIL [Concomitant]
     Dosage: ^20^ DAILY
     Dates: start: 20090129
  10. ACIPHEX [Concomitant]
     Dosage: UNK
     Dates: start: 20090129
  11. OMEPRAZOLE [Concomitant]
     Dosage: 20 MG, 1X/DAY
     Dates: start: 20090204

REACTIONS (1)
  - Type 2 diabetes mellitus [Not Recovered/Not Resolved]
